FAERS Safety Report 6578287-9 (Version None)
Quarter: 2010Q1

REPORT INFORMATION
  Report Type: 
  Country: None (occurrence: None)
  Receive Date: 20100211
  Receipt Date: 20100205
  Transmission Date: 20100710
  Serious: Yes (Hospitalization)
  Sender: FDA-Public Use
  Company Number: B0631439A

PATIENT
  Sex: Female

DRUGS (4)
  1. TELZIR [Suspect]
     Indication: HIV INFECTION
     Dosage: 2TAB PER DAY
     Route: 048
     Dates: start: 20090920
  2. COMBIVIR [Suspect]
     Indication: HIV INFECTION
     Route: 065
  3. NORVIR [Suspect]
     Indication: HIV INFECTION
     Route: 065
  4. KALETRA [Suspect]
     Indication: HIV INFECTION
     Route: 065
     Dates: start: 20090901, end: 20090901

REACTIONS (3)
  - DRUG EXPOSURE DURING PREGNANCY [None]
  - PRE-ECLAMPSIA [None]
  - PREMATURE BABY [None]
